FAERS Safety Report 19770547 (Version 1)
Quarter: 2021Q3

REPORT INFORMATION
  Report Type: Spontaneous
  Country: US (occurrence: US)
  Receive Date: 20210901
  Receipt Date: 20210901
  Transmission Date: 20211014
  Serious: Yes (Hospitalization)
  Sender: FDA-Public Use
  Company Number: US-MICRO LABS LIMITED-ML2021-02200

PATIENT
  Age: 17 Month
  Sex: Female

DRUGS (3)
  1. METFORMIN [Suspect]
     Active Substance: METFORMIN HYDROCHLORIDE
  2. MULTIVITAMINS [Suspect]
     Active Substance: VITAMINS
  3. LOSARTAN (ANDA 091541) [Suspect]
     Active Substance: LOSARTAN POTASSIUM

REACTIONS (1)
  - Accidental exposure to product [Unknown]
